FAERS Safety Report 5609126-8 (Version None)
Quarter: 2008Q1

REPORT INFORMATION
  Report Type: 
  Country: None (occurrence: None)
  Receive Date: 20080131
  Receipt Date: 20071120
  Transmission Date: 20080703
  Serious: Yes (Other)
  Sender: FDA-Public Use
  Company Number: US-TEVA-162546USA

PATIENT
  Sex: Female

DRUGS (1)
  1. COPAXONE [Suspect]
     Indication: MULTIPLE SCLEROSIS
     Route: 058
     Dates: start: 20060519, end: 20070205

REACTIONS (3)
  - NERVOUS SYSTEM DISORDER [None]
  - PULMONARY MASS [None]
  - SARCOIDOSIS [None]
